FAERS Safety Report 19561508 (Version 1)
Quarter: 2021Q3

REPORT INFORMATION
  Report Type: Spontaneous
  Country: US (occurrence: US)
  Receive Date: 20210714
  Receipt Date: 20210714
  Transmission Date: 20211014
  Serious: Yes (Other)
  Sender: FDA-Public Use
  Company Number: US-ALLERGAN-2125436US

PATIENT
  Sex: Female

DRUGS (1)
  1. URSODEOXYCHOLIC ACID UNK [Suspect]
     Active Substance: URSODIOL
     Indication: PRODUCT USED FOR UNKNOWN INDICATION
     Dosage: 300 MG CAPSULE

REACTIONS (6)
  - Intentional underdose [Unknown]
  - Product availability issue [Unknown]
  - Transplant [Unknown]
  - Multiple allergies [Not Recovered/Not Resolved]
  - Wrong technique in product usage process [Unknown]
  - Stress [Unknown]

NARRATIVE: CASE EVENT DATE: 2004
